FAERS Safety Report 6704370-0 (Version None)
Quarter: 2010Q2

REPORT INFORMATION
  Report Type: 
  Country: None (occurrence: None)
  Receive Date: 20100430
  Receipt Date: 20100420
  Transmission Date: 20101027
  Serious: Yes (Life-Threatening, Hospitalization, Other)
  Sender: FDA-Public Use
  Company Number: US-JNJFOC-20100305476

PATIENT
  Sex: Male
  Weight: 52.62 kg

DRUGS (1)
  1. REMICADE [Suspect]
     Indication: CROHN'S DISEASE
     Dosage: FREQUENCY UNSPECIFIED
     Route: 042

REACTIONS (2)
  - BLADDER CANCER [None]
  - CHRONIC LYMPHOCYTIC LEUKAEMIA [None]
